FAERS Safety Report 4389290-1 (Version None)
Quarter: 2004Q2

REPORT INFORMATION
  Report Type: 
  Country: None (occurrence: None)
  Receive Date: 20040628
  Receipt Date: 20040618
  Transmission Date: 20050107
  Serious: Yes (Hospitalization, Other)
  Sender: FDA-Public Use
  Company Number: KII-2004-0011508

PATIENT
  Age: 60 Year
  Sex: Female

DRUGS (10)
  1. MORPHINE SULFATE [Suspect]
     Dosage: ORAL
     Route: 048
  2. DIURETICS [Concomitant]
     Dosage: ORAL
     Route: 048
  3. MULTIPLE VITAMIN [Suspect]
     Dosage: ORAL
     Route: 048
  4. CHLORAL HYDRATE (CHLORAL HYDRATE) [Suspect]
     Dosage: ORAL
     Route: 048
  5. ACE INHIBITOR (NOS) [Concomitant]
     Dosage: ORAL
     Route: 048
  6. SERUM LIPIDE REDUCING AGENTS [Concomitant]
  7. ANTISPASMODICS/ANTICHOLINERGICS [Concomitant]
     Dosage: ORAL
     Route: 048
  8. AMITRIPTYLINE HCL [Suspect]
     Dosage: ORAL
     Route: 048
  9. ANTIEPILEPTICS [Concomitant]
     Dosage: ORAL
     Route: 048
  10. DITROPAN [Suspect]
     Dosage: ORAL
     Route: 048

REACTIONS (14)
  - ANION GAP INCREASED [None]
  - BLOOD LACTIC ACID INCREASED [None]
  - DISORIENTATION [None]
  - ELECTROCARDIOGRAM ST SEGMENT ELEVATION [None]
  - HAEMATOCRIT DECREASED [None]
  - HYPERHIDROSIS [None]
  - HYPOTENSION [None]
  - INCOHERENT [None]
  - METABOLIC ACIDOSIS [None]
  - MYOCARDIAL INFARCTION [None]
  - OXYGEN SATURATION ABNORMAL [None]
  - RESPIRATORY DISTRESS [None]
  - SINUS TACHYCARDIA [None]
  - SYNCOPE [None]
